FAERS Safety Report 6631693-6 (Version None)
Quarter: 2010Q1

REPORT INFORMATION
  Report Type: 
  Country: None (occurrence: None)
  Receive Date: 20100312
  Receipt Date: 20100309
  Transmission Date: 20100710
  Serious: Yes (Death, Hospitalization)
  Sender: FDA-Public Use
  Company Number: PHHY2009GB52336

PATIENT
  Sex: Male

DRUGS (5)
  1. CLOZARIL [Suspect]
     Indication: PSYCHOTIC DISORDER
     Dosage: 12.5 MG, QHS
     Dates: start: 20090930
  2. CLOZARIL [Suspect]
     Indication: PARKINSON'S DISEASE
  3. CLOZARIL [Suspect]
     Indication: CONFUSIONAL STATE
  4. CLOZARIL [Suspect]
     Indication: AGITATION
  5. CLOZARIL [Suspect]
     Indication: DEMENTIA

REACTIONS (5)
  - ASTHENIA [None]
  - GENERAL PHYSICAL HEALTH DETERIORATION [None]
  - HAEMOGLOBIN DECREASED [None]
  - PARKINSON'S DISEASE [None]
  - PNEUMONIA [None]
